FAERS Safety Report 25866589 (Version 1)
Quarter: 2025Q3

REPORT INFORMATION
  Report Type: Spontaneous
  Country: US (occurrence: US)
  Receive Date: 20250930
  Receipt Date: 20250930
  Transmission Date: 20251021
  Serious: Yes (Other)
  Sender: MERCK SHARP & DOHME LLC
  Company Number: US-009507513-2334648

PATIENT
  Sex: Male

DRUGS (2)
  1. TEMOZOLOMIDE [Suspect]
     Active Substance: TEMOZOLOMIDE
     Dates: start: 2009
  2. GLEOSTINE [Suspect]
     Active Substance: LOMUSTINE
     Dates: start: 2020

REACTIONS (15)
  - Recurrent cancer [Unknown]
  - Malignant oligodendroglioma [Unknown]
  - Product use in unapproved indication [Unknown]
  - Product use in unapproved indication [Unknown]
  - Malignant oligodendroglioma [Unknown]
  - Malignant oligodendroglioma [Unknown]
  - Malignant oligodendroglioma [Unknown]
  - Recurrent cancer [Unknown]
  - Product use in unapproved indication [Unknown]
  - Recurrent cancer [Unknown]
  - Recurrent cancer [Unknown]
  - Malignant oligodendroglioma [Unknown]
  - Recurrent cancer [Unknown]
  - Malignant oligodendroglioma [Unknown]
  - Recurrent cancer [Unknown]

NARRATIVE: CASE EVENT DATE: 20040101
